FAERS Safety Report 21761054 (Version 5)
Quarter: 2024Q4

REPORT INFORMATION
  Report Type: Spontaneous
  Country: US (occurrence: US)
  Receive Date: 20221221
  Receipt Date: 20241125
  Transmission Date: 20250115
  Serious: Yes (Other)
  Sender: PFIZER
  Company Number: US-PFIZER INC-PV202200127578

PATIENT
  Age: 78 Year
  Sex: Female

DRUGS (1)
  1. IBRANCE [Suspect]
     Active Substance: PALBOCICLIB
     Dosage: 1 TAB BY MOUTH DAILY FOR 21 DAYS AND 7 DAYS OFF
     Route: 048
     Dates: start: 20240304, end: 20241116

REACTIONS (2)
  - Lower limb fracture [Unknown]
  - Nasopharyngitis [Unknown]
